FAERS Safety Report 5838845-3 (Version None)
Quarter: 2008Q3

REPORT INFORMATION
  Report Type: 
  Country: None (occurrence: None)
  Receive Date: 20080804
  Receipt Date: 20071025
  Transmission Date: 20090109
  Serious: Yes (Hospitalization)
  Sender: FDA-Public Use
  Company Number: DSU-2007-00786

PATIENT
  Age: 51 Year
  Sex: Female
  Weight: 123.3784 kg

DRUGS (1)
  1. BENICAR HCT [Suspect]
     Indication: DRUG USE FOR UNKNOWN INDICATION
     Dosage: 40/12.5 MG (QD),PER ORAL
     Route: 048
     Dates: start: 20050706

REACTIONS (3)
  - COELIAC DISEASE [None]
  - DIARRHOEA [None]
  - VOMITING [None]
